FAERS Safety Report 5033956-7 (Version None)
Quarter: 2006Q2

REPORT INFORMATION
  Report Type: 
  Country: None (occurrence: None)
  Receive Date: 20060626
  Receipt Date: 20060614
  Transmission Date: 20061013
  Serious: Yes (Hospitalization, Other)
  Sender: FDA-Public Use
  Company Number: US-JNJFOC-20060505093

PATIENT
  Sex: Male
  Weight: 94.8 kg

DRUGS (7)
  1. REMICADE [Suspect]
     Route: 042
  2. REMICADE [Suspect]
     Dosage: 31 INFUSIONS ON UNKNOWN DATES (PATIENT RECEIVED A TOTAL OF 33 INFUSIONS)
     Route: 042
  3. REMICADE [Suspect]
     Indication: RHEUMATOID ARTHRITIS
     Route: 042
  4. METHOTREXATE [Concomitant]
  5. FOLIC ACID [Concomitant]
  6. FLEXERIL [Concomitant]
  7. LORTAB [Concomitant]

REACTIONS (5)
  - BLOOD SODIUM DECREASED [None]
  - DEHYDRATION [None]
  - MYCOBACTERIAL INFECTION [None]
  - PNEUMONIA [None]
  - SHOCK [None]
